FAERS Safety Report 5909958-2 (Version None)
Quarter: 2008Q4

REPORT INFORMATION
  Report Type: 
  Country: None (occurrence: None)
  Receive Date: 20081002
  Receipt Date: 20080929
  Transmission Date: 20090506
  Serious: Yes (Death, Hospitalization)
  Sender: FDA-Public Use
  Company Number: 2008AL007289

PATIENT
  Age: 75 Year
  Sex: Male

DRUGS (9)
  1. DIGOXIN [Suspect]
     Indication: ATRIAL FIBRILLATION
     Dosage: 0.25%, DAILY, PO
     Route: 048
     Dates: start: 20080322
  2. DIGOXIN [Suspect]
     Indication: CARDIAC FAILURE CONGESTIVE
     Dosage: 0.25%, DAILY, PO
     Route: 048
     Dates: start: 20080322
  3. COREG [Concomitant]
  4. WARFARIN SODIUM [Concomitant]
  5. ASPIRIN [Concomitant]
  6. AMARYL [Concomitant]
  7. FUROSEMIDE [Concomitant]
  8. LISINOPRIL [Concomitant]
  9. K-DUR [Concomitant]

REACTIONS (6)
  - ANOREXIA [None]
  - CARDIAC DISORDER [None]
  - DIZZINESS [None]
  - GALLBLADDER DISORDER [None]
  - NAUSEA [None]
  - RENAL DISORDER [None]
